FAERS Safety Report 5423826-4 (Version None)
Quarter: 2007Q3

REPORT INFORMATION
  Report Type: 
  Country: None (occurrence: None)
  Receive Date: 20070727
  Receipt Date: 20060613
  Transmission Date: 20080115
  Serious: Yes (Hospitalization)
  Sender: FDA-Public Use
  Company Number: THYM-10966

PATIENT
  Age: 50 Year
  Sex: Male
  Weight: 74.3899 kg

DRUGS (5)
  1. THYMOGLOBULIN [Suspect]
     Indication: IMMUNOSUPPRESSANT DRUG THERAPY
     Dosage: 125 MG QD IV
     Route: 042
     Dates: start: 20051116, end: 20051119
  2. THYMOGLOBULIN [Suspect]
     Indication: IMMUNOSUPPRESSANT DRUG THERAPY
     Dosage: 75 MG QD IV
     Route: 042
     Dates: start: 20051120, end: 20051120
  3. NEORAL [Concomitant]
  4. RAPAMUNE [Concomitant]
  5. ATENOLOL [Concomitant]

REACTIONS (2)
  - CHILLS [None]
  - PYREXIA [None]
